FAERS Safety Report 4639198-9 (Version None)
Quarter: 2005Q2

REPORT INFORMATION
  Report Type: 
  Country: None (occurrence: None)
  Receive Date: 20050418
  Receipt Date: 20050408
  Transmission Date: 20051028
  Serious: Yes (Disabling)
  Sender: FDA-Public Use
  Company Number: 2005AP01089

PATIENT
  Age: 71 Year
  Sex: Male

DRUGS (6)
  1. ZOLADEX [Suspect]
     Indication: PROSTATE CANCER
     Dosage: 3.6 MG SQ
     Route: 058
     Dates: start: 20021101, end: 20040801
  2. NORVASC [Concomitant]
  3. LONGES [Concomitant]
  4. CARDENALIN [Concomitant]
  5. ZANTAC [Concomitant]
  6. RABEPRAZOLE SODIUM [Concomitant]

REACTIONS (4)
  - INFECTION [None]
  - INTERSTITIAL LUNG DISEASE [None]
  - LYMPHOCYTE STIMULATION TEST POSITIVE [None]
  - RESPIRATORY DISORDER [None]
